FAERS Safety Report 24346828 (Version 1)
Quarter: 2024Q3

REPORT INFORMATION
  Report Type: Spontaneous
  Country: TW (occurrence: TW)
  Receive Date: 20240921
  Receipt Date: 20240921
  Transmission Date: 20241017
  Serious: Yes (Other)
  Sender: MACLEODS
  Company Number: TW-MLMSERVICE-20240902-PI178297-00201-1

PATIENT

DRUGS (3)
  1. LIDOCAINE [Suspect]
     Active Substance: LIDOCAINE
     Indication: Local anaesthesia
     Dosage: ABOUT 0.5 ML EACH SIDE, THROUGH A 25-GAUZE SPINAL NEEDLE
     Route: 065
  2. EPINEPHRINE [Concomitant]
     Active Substance: EPINEPHRINE
     Indication: Product used for unknown indication
     Dosage: 1:50000, ABOUT 0.5 ML EACH SIDE, THROUGH A 25-GAUZE SPINAL NEEDLE
     Route: 065
  3. SUGAMMADEX [Concomitant]
     Active Substance: SUGAMMADEX
     Route: 065

REACTIONS (1)
  - Gaze palsy [Recovered/Resolved]
